FAERS Safety Report 8194706-9 (Version None)
Quarter: 2012Q1

REPORT INFORMATION
  Report Type: 
  Country: None (occurrence: None)
  Receive Date: 20120308
  Receipt Date: 20110207
  Transmission Date: 20120608
  Serious: No
  Sender: FDA-Public Use
  Company Number: US-GLAXOSMITHKLINE-A0912199A

PATIENT
  Age: 34 Year
  Sex: Male

DRUGS (1)
  1. NICORETTE [Suspect]
     Indication: NICOTINE DEPENDENCE

REACTIONS (4)
  - NICOTINE DEPENDENCE [None]
  - HEART RATE INCREASED [None]
  - CARDIAC FLUTTER [None]
  - DRUG ADMINISTRATION ERROR [None]
